FAERS Safety Report 6457746-3 (Version None)
Quarter: 2009Q4

REPORT INFORMATION
  Report Type: 
  Country: None (occurrence: None)
  Receive Date: 20091120
  Receipt Date: 20091104
  Transmission Date: 20100525
  Serious: Yes (Hospitalization, Disabling)
  Sender: FDA-Public Use
  Company Number: 2006S1000279

PATIENT
  Age: 33 Year
  Sex: Male

DRUGS (5)
  1. ACITRETIN [Suspect]
     Indication: PSORIASIS
     Dosage: 20 MG;QD;PO; 60 MG;QD;PO
     Route: 048
     Dates: start: 20031101, end: 20041201
  2. ACITRETIN [Suspect]
     Indication: PSORIASIS
     Dosage: 20 MG;QD;PO; 60 MG;QD;PO
     Route: 048
     Dates: start: 20021101
  3. CYCLOSPORINE [Suspect]
     Indication: PSORIASIS
     Dosage: 3 MG/KG;QD; 1.5 MG/KG;QD
     Dates: start: 20040101, end: 20040501
  4. CYCLOSPORINE [Suspect]
     Indication: PSORIASIS
     Dosage: 3 MG/KG;QD; 1.5 MG/KG;QD
     Dates: start: 20040501, end: 20040801
  5. BENDROFLUMETHIAZIDE [Concomitant]

REACTIONS (6)
  - BLOOD PRESSURE INCREASED [None]
  - EXTRASKELETAL OSSIFICATION [None]
  - MYOPATHY [None]
  - PAIN IN EXTREMITY [None]
  - SPINAL OSTEOARTHRITIS [None]
  - SYNDESMOPHYTE [None]
